FAERS Safety Report 5433626-7 (Version None)
Quarter: 2007Q3

REPORT INFORMATION
  Report Type: 
  Country: None (occurrence: None)
  Receive Date: 20070831
  Receipt Date: 20070820
  Transmission Date: 20080115
  Serious: Yes (Other)
  Sender: FDA-Public Use
  Company Number: IT-NOVOPROD-266905

PATIENT
  Sex: Female
  Weight: 3.18 kg

DRUGS (2)
  1. LEVEMIR [Suspect]
     Indication: DRUG USE FOR UNKNOWN INDICATION
     Dosage: .31 IU,/KG
     Route: 064
  2. NOVOLOG MIX 70/30 [Suspect]
     Indication: DRUG USE FOR UNKNOWN INDICATION
     Dosage: .55 IU, KG
     Route: 064

REACTIONS (4)
  - DRUG EXPOSURE DURING PREGNANCY [None]
  - OXYGEN SUPPLEMENTATION [None]
  - PLACENTAL DISORDER [None]
  - PREMATURE BABY [None]
